FAERS Safety Report 7652456-9 (Version None)
Quarter: 2011Q3

REPORT INFORMATION
  Report Type: 
  Country: None (occurrence: None)
  Receive Date: 20110801
  Receipt Date: 20110801
  Transmission Date: 20111222
  Serious: No
  Sender: FDA-Public Use
  Company Number: None

PATIENT
  Age: 56 Year
  Sex: Male
  Weight: 107.7 kg

DRUGS (1)
  1. ILOPERIDONE [Suspect]
     Indication: SCHIZOPHRENIA, PARANOID TYPE
     Dosage: 12MG BID PO
     Route: 048
     Dates: start: 20110106, end: 20110512

REACTIONS (1)
  - DYSPHAGIA [None]
